FAERS Safety Report 17817081 (Version 1)
Quarter: 2020Q2

REPORT INFORMATION
  Report Type: Spontaneous
  Country: GB (occurrence: GB)
  Receive Date: 20200522
  Receipt Date: 20200522
  Transmission Date: 20200714
  Serious: Yes (Hospitalization)
  Sender: FDA-Public Use
  Company Number: GB-MYLANLABS-2020M1050470

PATIENT
  Age: 2 Year
  Sex: Female
  Weight: 10.7 kg

DRUGS (11)
  1. LEVETIRACETAM. [Suspect]
     Active Substance: LEVETIRACETAM
     Indication: CEREBRAL INFARCTION
     Dosage: 150 MILLIGRAM, QD
     Route: 048
     Dates: start: 20190301
  2. DARBEPOETIN ALFA [Concomitant]
     Active Substance: DARBEPOETIN ALFA
     Dosage: UNK
  3. MOVICOL [Concomitant]
     Active Substance: POLYETHYLENE GLYCOL 3350\POTASSIUM CHLORIDE\SODIUM BICARBONATE\SODIUM CHLORIDE
     Dosage: UNK
  4. DERMOL                             /01330701/ [Concomitant]
     Dosage: UNK
  5. TINZAPARIN [Concomitant]
     Active Substance: TINZAPARIN
     Dosage: UNK
  6. CHLORPHENAMINE [Concomitant]
     Active Substance: CHLORPHENIRAMINE MALEATE
     Dosage: UNK
  7. BETNOVATE C [Concomitant]
     Dosage: UNK
  8. DOMPERIDONE [Concomitant]
     Active Substance: DOMPERIDONE
     Dosage: UNK
  9. VENOFER [Concomitant]
     Active Substance: IRON SUCROSE
     Dosage: UNK
  10. CINACALCET. [Concomitant]
     Active Substance: CINACALCET
     Dosage: UNK
  11. GLYCEROL [Concomitant]
     Active Substance: GLYCERIN
     Dosage: UNK

REACTIONS (2)
  - Incorrect dose administered [Unknown]
  - Epilepsy [Recovered/Resolved]

NARRATIVE: CASE EVENT DATE: 20200427
